FAERS Safety Report 25284920 (Version 2)
Quarter: 2025Q2

REPORT INFORMATION
  Report Type: Spontaneous
  Country: DE (occurrence: DE)
  Receive Date: 20250508
  Receipt Date: 20250526
  Transmission Date: 20250716
  Serious: No
  Sender: BIOGEN
  Company Number: DE-BIOGEN-2025BI01310110

PATIENT
  Sex: Female

DRUGS (1)
  1. PLEGRIDY [Suspect]
     Active Substance: PEGINTERFERON BETA-1A
     Indication: Multiple sclerosis
     Route: 050

REACTIONS (2)
  - Hyperthyroidism [Not Recovered/Not Resolved]
  - Autoimmune thyroiditis [Not Recovered/Not Resolved]

NARRATIVE: CASE EVENT DATE: 20240101
